FAERS Safety Report 19768837 (Version 1)
Quarter: 2021Q3

REPORT INFORMATION
  Report Type: Report from Study
  Country: US (occurrence: US)
  Receive Date: 20210831
  Receipt Date: 20210831
  Transmission Date: 20211014
  Serious: Yes (Disabling, Other)
  Sender: FDA-Public Use
  Company Number: US-SA-2020SA237110

PATIENT
  Age: 54 Year
  Sex: Female

DRUGS (9)
  1. CAPSAICIN. [Concomitant]
     Active Substance: CAPSAICIN
     Dosage: UNK
  2. HYDROXYCHLOROQUINE [Concomitant]
     Active Substance: HYDROXYCHLOROQUINE
     Dosage: UNK
     Dates: end: 202008
  3. CAPSAICIN. [Concomitant]
     Active Substance: CAPSAICIN
     Dates: start: 20210110, end: 20210115
  4. DULOXETINE. [Concomitant]
     Active Substance: DULOXETINE
     Indication: PANIC DISORDER
  5. DICLOFENAC SODIUM. [Concomitant]
     Active Substance: DICLOFENAC SODIUM
     Indication: RHEUMATOID ARTHRITIS
     Dosage: UNK
     Dates: start: 202003, end: 202012
  6. IRON [Concomitant]
     Active Substance: IRON
     Dosage: UNK
  7. TERIFLUNOMIDE. [Suspect]
     Active Substance: TERIFLUNOMIDE
     Dosage: 14 MG, QD
     Route: 048
     Dates: start: 20200711
  8. DULOXETINE. [Concomitant]
     Active Substance: DULOXETINE
     Indication: ANXIETY
     Route: 065
  9. TERIFLUNOMIDE. [Suspect]
     Active Substance: TERIFLUNOMIDE
     Indication: MULTIPLE SCLEROSIS
     Dosage: 7 MG, QD
     Route: 048
     Dates: start: 20200513, end: 20200710

REACTIONS (18)
  - Haematochezia [Unknown]
  - Vitreous floaters [Not Recovered/Not Resolved]
  - Urinary incontinence [Not Recovered/Not Resolved]
  - Alopecia [Unknown]
  - Anal incontinence [Not Recovered/Not Resolved]
  - Feeling of body temperature change [Unknown]
  - Pain in extremity [Unknown]
  - Condition aggravated [Unknown]
  - Red blood cell count decreased [Unknown]
  - Pain [Not Recovered/Not Resolved]
  - Neck pain [Unknown]
  - Arthralgia [Unknown]
  - Abdominal pain upper [Unknown]
  - Paraesthesia [Not Recovered/Not Resolved]
  - Trismus [Not Recovered/Not Resolved]
  - Feeling abnormal [Unknown]
  - Disability [Unknown]
  - Insomnia [Not Recovered/Not Resolved]

NARRATIVE: CASE EVENT DATE: 2020
